FAERS Safety Report 22200953 (Version 1)
Quarter: 2023Q2

REPORT INFORMATION
  Report Type: Spontaneous
  Country: US (occurrence: US)
  Receive Date: 20230412
  Receipt Date: 20230412
  Transmission Date: 20230722
  Serious: Yes (Life-Threatening, Hospitalization, Other)
  Sender: FDA-Public Use
  Company Number: US-MLMSERVICE-20230327-4188460-1

PATIENT
  Age: 77 Year
  Sex: Male

DRUGS (1)
  1. AMIODARONE HYDROCHLORIDE [Suspect]
     Active Substance: AMIODARONE HYDROCHLORIDE
     Indication: Atrial fibrillation
     Dosage: UNK
     Route: 048

REACTIONS (6)
  - Atrial fibrillation [Recovered/Resolved]
  - Cardiac arrest [Recovered/Resolved]
  - Nodal arrhythmia [Recovered/Resolved]
  - Sinus bradycardia [Recovered/Resolved]
  - Sinus node dysfunction [Recovered/Resolved]
  - Torsade de pointes [Recovered/Resolved]
